FAERS Safety Report 16832649 (Version 1)
Quarter: 2019Q3

REPORT INFORMATION
  Report Type: Spontaneous
  Country: US (occurrence: US)
  Receive Date: 20190731
  Receipt Date: 20190731
  Transmission Date: 20191005
  Serious: No
  Sender: FDA-Public Use
  Company Number: None

PATIENT
  Age: 53 Year

DRUGS (1)
  1. COSENTYX [Suspect]
     Active Substance: SECUKINUMAB
     Route: 058
     Dates: start: 201906

REACTIONS (3)
  - Hypersensitivity [None]
  - Injection site urticaria [None]
  - Injection site reaction [None]

NARRATIVE: CASE EVENT DATE: 20190731
